FAERS Safety Report 20504067 (Version 2)
Quarter: 2022Q1

REPORT INFORMATION
  Report Type: Report from Study
  Country: GB (occurrence: GB)
  Receive Date: 20220222
  Receipt Date: 20220311
  Transmission Date: 20220423
  Serious: Yes (Death, Hospitalization, Other)
  Sender: FDA-Public Use
  Company Number: GB-GILEAD-2022-0570515

PATIENT
  Age: 43 Year
  Sex: Female

DRUGS (6)
  1. SACITUZUMAB GOVITECAN [Suspect]
     Active Substance: SACITUZUMAB GOVITECAN
     Indication: Breast cancer metastatic
     Dosage: UNK
     Route: 065
     Dates: start: 20211022, end: 20211022
  2. SACITUZUMAB GOVITECAN [Suspect]
     Active Substance: SACITUZUMAB GOVITECAN
     Dosage: UNK
     Route: 065
     Dates: start: 20211029, end: 20211029
  3. SACITUZUMAB GOVITECAN [Suspect]
     Active Substance: SACITUZUMAB GOVITECAN
     Dosage: UNK
     Route: 065
     Dates: start: 20211111, end: 20211111
  4. SACITUZUMAB GOVITECAN [Suspect]
     Active Substance: SACITUZUMAB GOVITECAN
     Dosage: UNK
     Route: 065
     Dates: start: 20211118, end: 20211118
  5. SACITUZUMAB GOVITECAN [Suspect]
     Active Substance: SACITUZUMAB GOVITECAN
     Dosage: UNK
     Route: 065
     Dates: start: 20211202, end: 20211202
  6. SACITUZUMAB GOVITECAN [Suspect]
     Active Substance: SACITUZUMAB GOVITECAN
     Dosage: UNK
     Route: 065
     Dates: start: 20211209, end: 20211209

REACTIONS (4)
  - COVID-19 [Unknown]
  - Lymphangitis [Unknown]
  - Pleural effusion [Unknown]
  - Breast cancer metastatic [Fatal]
